FAERS Safety Report 8819791 (Version 4)
Quarter: 2014Q2

REPORT INFORMATION
  Report Type: Spontaneous
  Country: US (occurrence: US)
  Receive Date: 20121001
  Receipt Date: 20140603
  Transmission Date: 20141212
  Serious: No
  Sender: FDA-Public Use
  Company Number: US-ASTRAZENECA-2012SE72400

PATIENT
  Age: 81 Year
  Sex: Female
  Weight: 48.1 kg

DRUGS (13)
  1. SYMBICORT PMDI [Suspect]
     Indication: CHRONIC OBSTRUCTIVE PULMONARY DISEASE
     Route: 055
     Dates: end: 201208
  2. SYMBICORT PMDI [Suspect]
     Indication: CHRONIC OBSTRUCTIVE PULMONARY DISEASE
     Dosage: 160MCG. 2 PUFFS BID
     Route: 055
  3. SYMBICORT PMDI [Suspect]
     Indication: CHRONIC OBSTRUCTIVE PULMONARY DISEASE
     Dosage: 80/4.5 MCG. 2 PUFFS BID
     Route: 055
     Dates: end: 201403
  4. NEXIUM [Suspect]
     Indication: GASTROOESOPHAGEAL REFLUX DISEASE
     Route: 048
  5. NEXIUM [Suspect]
     Indication: GASTROOESOPHAGEAL REFLUX DISEASE
     Route: 048
  6. CRESTOR [Suspect]
     Indication: BLOOD CHOLESTEROL ABNORMAL
     Route: 048
     Dates: end: 201206
  7. CRESTOR [Suspect]
     Indication: HIATUS HERNIA
     Route: 048
     Dates: end: 201206
  8. CRESTOR [Suspect]
     Indication: GASTROOESOPHAGEAL REFLUX DISEASE
     Route: 048
     Dates: end: 201206
  9. CRESTOR [Suspect]
     Indication: BLOOD CHOLESTEROL ABNORMAL
     Route: 048
  10. CRESTOR [Suspect]
     Indication: HIATUS HERNIA
     Route: 048
  11. CRESTOR [Suspect]
     Indication: GASTROOESOPHAGEAL REFLUX DISEASE
     Route: 048
  12. ASPIRIN [Concomitant]
  13. VITAMINS [Concomitant]

REACTIONS (11)
  - Abdominal pain upper [Unknown]
  - Blood cholesterol increased [Unknown]
  - Fatigue [Unknown]
  - Gastrooesophageal reflux disease [Unknown]
  - Malaise [Unknown]
  - Emphysema [Unknown]
  - Dyspnoea [Unknown]
  - Off label use [Unknown]
  - Device misuse [Unknown]
  - Drug dose omission [Unknown]
  - Intentional product misuse [Unknown]
